FAERS Safety Report 18440721 (Version 2)
Quarter: 2020Q4

REPORT INFORMATION
  Report Type: Report from Study
  Country: CO (occurrence: CO)
  Receive Date: 20201029
  Receipt Date: 20201125
  Transmission Date: 20210114
  Serious: Yes (Other)
  Sender: FDA-Public Use
  Company Number: CO-TAKEDA-2019TUS012138

PATIENT
  Age: 20 Year
  Sex: Female
  Weight: 53 kg

DRUGS (4)
  1. MESALAMINE. [Concomitant]
     Active Substance: MESALAMINE
     Dosage: 3 MILLIGRAM, QD
  2. PREDNISONE. [Concomitant]
     Active Substance: PREDNISONE
     Dosage: 10 MILLIGRAM, QD
  3. VEDOLIZUMAB [Suspect]
     Active Substance: VEDOLIZUMAB
     Indication: COLITIS ULCERATIVE
     Dosage: 300 MILLIGRAM
     Route: 042
     Dates: start: 20190215
  4. AZATHIOPRINE. [Concomitant]
     Active Substance: AZATHIOPRINE
     Dosage: 50 MILLIGRAM, BID

REACTIONS (5)
  - Product dose omission issue [Unknown]
  - Rectal haemorrhage [Recovering/Resolving]
  - Influenza [Recovering/Resolving]
  - Bacterial infection [Unknown]
  - Localised infection [Recovering/Resolving]

NARRATIVE: CASE EVENT DATE: 20190223
